FAERS Safety Report 7701240-6 (Version None)
Quarter: 2011Q3

REPORT INFORMATION
  Report Type: 
  Country: None (occurrence: None)
  Receive Date: 20110822
  Receipt Date: 20110815
  Transmission Date: 20111222
  Serious: Yes (Hospitalization)
  Sender: FDA-Public Use
  Company Number: US-GLAXOSMITHKLINE-A0941110A

PATIENT
  Age: 75 Year
  Sex: Female

DRUGS (4)
  1. SINEMET [Concomitant]
  2. LIPITOR [Concomitant]
  3. REQUIP XL [Suspect]
     Indication: PARKINSON'S DISEASE
     Dosage: 6MG PER DAY
     Route: 048
     Dates: start: 20101109, end: 20110701
  4. AGGRENOX [Concomitant]

REACTIONS (4)
  - WRIST FRACTURE [None]
  - ROAD TRAFFIC ACCIDENT [None]
  - AMNESIA [None]
  - IMPAIRED DRIVING ABILITY [None]
